FAERS Safety Report 4311549-4 (Version None)
Quarter: 2004Q1

REPORT INFORMATION
  Report Type: 
  Country: None (occurrence: None)
  Receive Date: 20040303
  Receipt Date: 20040303
  Transmission Date: 20041129
  Serious: Yes (Hospitalization)
  Sender: FDA-Public Use
  Company Number: None

PATIENT
  Age: 68 Year
  Sex: Female

DRUGS (9)
  1. BENAZEPRIL HCL [Suspect]
     Indication: HYPERTENSION
     Dosage: 40 MG DAILY ORAL
     Route: 048
  2. SIMVASTATIN [Concomitant]
  3. METFORMIN [Concomitant]
  4. BENAZEPRIL HCL [Concomitant]
  5. HYDROCHLOROTHIAZIDE [Concomitant]
  6. FERROUS SULFATE TAB [Concomitant]
  7. ATENOLOL [Concomitant]
  8. ASPIRIN [Concomitant]
  9. HUMULIN 70/30 [Concomitant]

REACTIONS (5)
  - ANGIONEUROTIC OEDEMA [None]
  - FACIAL PARESIS [None]
  - HEMIPARESIS [None]
  - SWELLING FACE [None]
  - TRANSIENT ISCHAEMIC ATTACK [None]
